FAERS Safety Report 7386573-8 (Version None)
Quarter: 2011Q1

REPORT INFORMATION
  Report Type: 
  Country: None (occurrence: None)
  Receive Date: 20110329
  Receipt Date: 20110329
  Transmission Date: 20110831
  Serious: No
  Sender: FDA-Public Use
  Company Number: None

PATIENT
  Age: 61 Year
  Sex: Female
  Weight: 55.7924 kg

DRUGS (2)
  1. CLINDAMYCIN HCL [Suspect]
     Indication: INFECTION PROPHYLAXIS
     Dosage: TAKE 1 CAPSULE 4X A DAY FOR 3 DAY
     Dates: start: 20110310, end: 20110313
  2. CLINDAMYCIN HCL [Suspect]
     Indication: TOOTH EXTRACTION
     Dosage: TAKE 1 CAPSULE 4X A DAY FOR 3 DAY
     Dates: start: 20110310, end: 20110313

REACTIONS (2)
  - DIARRHOEA [None]
  - PALATAL OEDEMA [None]
